FAERS Safety Report 13762964 (Version 1)
Quarter: 2017Q3

REPORT INFORMATION
  Report Type: Spontaneous
  Country: DK (occurrence: DK)
  Receive Date: 20170718
  Receipt Date: 20170718
  Transmission Date: 20171127
  Serious: Yes (Life-Threatening, Hospitalization, Disabling)
  Sender: FDA-Public Use
  Company Number: DK-AUROBINDO-AUR-APL-2017-37206

PATIENT
  Age: 67 Year
  Sex: Female

DRUGS (1)
  1. ALENDRONIC ACID AUROBINDO 70 MG TABLETS [Suspect]
     Active Substance: ALENDRONIC ACID
     Indication: OSTEOPOROSIS
     Dosage: 70 MG, EVERY WEEK
     Route: 065
     Dates: start: 2007, end: 201703

REACTIONS (2)
  - Osteosynthesis [Unknown]
  - Femur fracture [Unknown]

NARRATIVE: CASE EVENT DATE: 20170308
